FAERS Safety Report 6094292-3 (Version None)
Quarter: 2009Q1

REPORT INFORMATION
  Report Type: 
  Country: None (occurrence: None)
  Receive Date: 20090223
  Receipt Date: 20090206
  Transmission Date: 20090719
  Serious: Yes (Other)
  Sender: FDA-Public Use
  Company Number: JP-1168539

PATIENT
  Age: 85 Year
  Sex: Female

DRUGS (1)
  1. TRAVATAN Z [Suspect]
     Indication: OPEN ANGLE GLAUCOMA
     Dosage: 1 GTT OU QD; OPTHALMIC
     Route: 047
     Dates: start: 20081230

REACTIONS (2)
  - ULCERATIVE KERATITIS [None]
  - VISUAL ACUITY REDUCED [None]
